FAERS Safety Report 7270266-1 (Version None)
Quarter: 2011Q1

REPORT INFORMATION
  Report Type: 
  Country: None (occurrence: None)
  Receive Date: 20110202
  Receipt Date: 20110128
  Transmission Date: 20110831
  Serious: Yes (Hospitalization, Other)
  Sender: FDA-Public Use
  Company Number: US-AMGEN-USASP2011003521

PATIENT
  Age: 47 Year
  Sex: Male

DRUGS (2)
  1. NPLATE [Suspect]
     Indication: IDIOPATHIC THROMBOCYTOPENIC PURPURA
     Dosage: 110 A?G, UNK
     Dates: start: 20110117
  2. NPLATE [Suspect]
     Dates: start: 20110117

REACTIONS (2)
  - PLATELET COUNT ABNORMAL [None]
  - DRUG INEFFECTIVE [None]
